FAERS Safety Report 22256914 (Version 1)
Quarter: 2023Q2

REPORT INFORMATION
  Report Type: Spontaneous
  Country: US (occurrence: US)
  Receive Date: 20230426
  Receipt Date: 20230426
  Transmission Date: 20230722
  Serious: Yes (Hospitalization, Other)
  Sender: FDA-Public Use
  Company Number: US-drreddys-LIT/USA/23/0164044

PATIENT
  Age: 78 Year
  Sex: Male

DRUGS (4)
  1. PEMETREXED DISODIUM [Suspect]
     Active Substance: PEMETREXED DISODIUM
     Indication: Lung adenocarcinoma stage III
     Dosage: 2 CYCLES
  2. PEMETREXED DISODIUM [Suspect]
     Active Substance: PEMETREXED DISODIUM
     Indication: Inflammatory myofibroblastic tumour
     Dosage: 2 CYCLES
  3. CARBOPLATIN [Suspect]
     Active Substance: CARBOPLATIN
     Indication: Lung adenocarcinoma stage III
     Dosage: 2 CYCLES
  4. CARBOPLATIN [Suspect]
     Active Substance: CARBOPLATIN
     Indication: Inflammatory myofibroblastic tumour

REACTIONS (3)
  - Lung adenocarcinoma [Unknown]
  - Disease progression [Unknown]
  - Drug ineffective [Unknown]
